FAERS Safety Report 24220807 (Version 1)
Quarter: 2024Q3

REPORT INFORMATION
  Report Type: Spontaneous
  Country: EG (occurrence: EG)
  Receive Date: 20240818
  Receipt Date: 20240818
  Transmission Date: 20241017
  Serious: Yes (Other)
  Sender: JOHNSON AND JOHNSON
  Company Number: EG-JNJFOC-20240828266

PATIENT
  Age: 49 Year
  Sex: Female

DRUGS (2)
  1. REMICADE [Suspect]
     Active Substance: INFLIXIMAB
     Indication: Crohn^s disease
     Route: 041
     Dates: start: 202112
  2. CORTISONE [Concomitant]
     Active Substance: CORTISONE

REACTIONS (4)
  - Anaemia [Unknown]
  - Haemorrhage [Unknown]
  - Drug ineffective [Unknown]
  - Off label use [Unknown]
